FAERS Safety Report 9163160 (Version 1)
Quarter: 2013Q1

REPORT INFORMATION
  Report Type: Spontaneous
  Country: US (occurrence: US)
  Receive Date: 20130314
  Receipt Date: 20130314
  Transmission Date: 20140127
  Serious: Yes (Hospitalization)
  Sender: FDA-Public Use
  Company Number: US-BAYER-2013-030703

PATIENT
  Age: 19 Year
  Sex: Female
  Weight: 68 kg

DRUGS (5)
  1. GIANVI [Suspect]
  2. AMPICILLIN [Concomitant]
     Dosage: UNK
     Dates: start: 20111016, end: 20111222
  3. SKELAXIN [Concomitant]
     Dosage: UNK
     Dates: start: 20111210
  4. NAPROXEN [Concomitant]
     Dosage: UNK
     Dates: start: 20111210
  5. AMOXICILLIN [Concomitant]

REACTIONS (1)
  - Pulmonary embolism [None]
